FAERS Safety Report 19728971 (Version 1)
Quarter: 2021Q3

REPORT INFORMATION
  Report Type: Spontaneous
  Country: FR (occurrence: FR)
  Receive Date: 20210820
  Receipt Date: 20210820
  Transmission Date: 20211014
  Serious: Yes (Other)
  Sender: FDA-Public Use
  Company Number: FR-TEVA-2021-FR-1942800

PATIENT
  Age: 53 Year
  Sex: Female

DRUGS (2)
  1. LAMALINE (CAFFEINE/PARACETAMOL/ATROPA BELLADONNA EXTRACT/PAPAVER SOMNIFERUM TINCTURE) [Suspect]
     Active Substance: ACETAMINOPHEN\BELLADONNA LEAF\CAFFEINE\OPIUM
     Indication: GAIT DISTURBANCE
     Dosage: 2 CP / D
     Route: 048
     Dates: start: 20210528
  2. OFLOXACINE [Suspect]
     Active Substance: OFLOXACIN
     Indication: OOPHORITIS
     Dosage: 2 CP / D
     Route: 048
     Dates: start: 20210528, end: 20210528

REACTIONS (1)
  - Hallucination, visual [Recovered/Resolved]

NARRATIVE: CASE EVENT DATE: 20210528
